FAERS Safety Report 19415244 (Version 1)
Quarter: 2021Q2

REPORT INFORMATION
  Report Type: Report from Study
  Country: TR (occurrence: TR)
  Receive Date: 20210614
  Receipt Date: 20210614
  Transmission Date: 20210717
  Serious: Yes (Other)
  Sender: FDA-Public Use
  Company Number: NVSC2021TR132129

PATIENT
  Age: 7 Year
  Sex: Male
  Weight: 15 kg

DRUGS (1)
  1. OMNITROPE [Suspect]
     Active Substance: SOMATROPIN
     Indication: BLOOD GROWTH HORMONE
     Dosage: 0.9 MG
     Route: 058
     Dates: start: 20200807

REACTIONS (1)
  - Palpitations [Unknown]

NARRATIVE: CASE EVENT DATE: 20210607
